FAERS Safety Report 13540705 (Version 1)
Quarter: 2017Q2

REPORT INFORMATION
  Report Type: Spontaneous
  Country: IT (occurrence: IT)
  Receive Date: 20170512
  Receipt Date: 20170512
  Transmission Date: 20170830
  Serious: Yes (Hospitalization)
  Sender: FDA-Public Use
  Company Number: IT-ASTRAZENECA-2017SE49768

PATIENT
  Age: 30336 Day
  Sex: Male

DRUGS (8)
  1. TORVAST [Concomitant]
     Active Substance: ATORVASTATIN
     Route: 048
  2. BISOPROLOL HEMIFUMARATE [Concomitant]
     Active Substance: BISOPROLOL FUMARATE
     Route: 048
  3. TRIATEC [Concomitant]
     Active Substance: RAMIPRIL
     Route: 048
  4. LASIX [Concomitant]
     Active Substance: FUROSEMIDE
     Route: 048
  5. CARDIOASPIRIN [Suspect]
     Active Substance: ASPIRIN
     Indication: ANTICOAGULANT THERAPY
     Route: 065
     Dates: start: 20160101, end: 20160713
  6. LANSOX [Concomitant]
     Active Substance: LANSOPRAZOLE
     Route: 048
  7. KANRENOL [Concomitant]
     Active Substance: CANRENOATE POTASSIUM
     Route: 048
  8. BRILIQUE [Suspect]
     Active Substance: TICAGRELOR
     Indication: ANTICOAGULANT THERAPY
     Route: 048
     Dates: start: 20160101, end: 20160713

REACTIONS (5)
  - Anaemia [Unknown]
  - Faeces discoloured [Unknown]
  - Dyspnoea exertional [Unknown]
  - Asthenia [Unknown]
  - Gastric haemorrhage [Unknown]

NARRATIVE: CASE EVENT DATE: 20160701
